FAERS Safety Report 24416705 (Version 1)
Quarter: 2024Q4

REPORT INFORMATION
  Report Type: Spontaneous
  Country: US (occurrence: US)
  Receive Date: 20241009
  Receipt Date: 20241009
  Transmission Date: 20250114
  Serious: No
  Sender: CB FLEET
  Company Number: US-C. B. Fleet Co., Inc.-202310-US-003349

PATIENT
  Sex: Female

DRUGS (1)
  1. MONISTAT 7 7-DAY DISPOSABLE APPLICATORS [Suspect]
     Active Substance: MICONAZOLE NITRATE
     Indication: Fungal infection
     Dosage: USED 6 NIGHTS
     Route: 067

REACTIONS (2)
  - Vaginal haemorrhage [Recovered/Resolved]
  - Intentional product misuse [Unknown]
